FAERS Safety Report 8252284-X (Version None)
Quarter: 2012Q2

REPORT INFORMATION
  Report Type: 
  Country: None (occurrence: None)
  Receive Date: 20120402
  Receipt Date: 20111011
  Transmission Date: 20120825
  Serious: No
  Sender: FDA-Public Use
  Company Number: US-ABBOTT-11P-163-0864284-00

PATIENT

DRUGS (1)
  1. ANDROGEL [Suspect]
     Indication: PRODUCT USED FOR UNKNOWN INDICATION
     Dosage: 4 PUMPS, ONCE DAILY

REACTIONS (2)
  - FEELING ABNORMAL [None]
  - NASOPHARYNGITIS [None]
